FAERS Safety Report 5272430-X (Version None)
Quarter: 2007Q1

REPORT INFORMATION
  Report Type: 
  Country: None (occurrence: None)
  Receive Date: 20061214
  Receipt Date: 20060613
  Transmission Date: 20070707
  Serious: Yes (Hospitalization, Other)
  Sender: FDA-Public Use
  Company Number: 2006076540

PATIENT
  Age: 67 Year
  Sex: Female
  Weight: 67.586 kg

DRUGS (1)
  1. BEXTRA [Suspect]
     Indication: OSTEOARTHRITIS
     Dosage: 10 MG (10 MG, 1 IN 1 D), UNKNOWN
     Dates: start: 20040527

REACTIONS (3)
  - MYOCARDIAL INFARCTION [None]
  - PULMONARY OEDEMA [None]
  - SKIN DISORDER [None]
